FAERS Safety Report 23738810 (Version 1)
Quarter: 2024Q2

REPORT INFORMATION
  Report Type: Report from Study
  Country: US (occurrence: US)
  Receive Date: 20240413
  Receipt Date: 20240413
  Transmission Date: 20240716
  Serious: Yes (Hospitalization, Other)
  Sender: FDA-Public Use
  Company Number: US-ABBVIE-5713860

PATIENT
  Sex: Male

DRUGS (1)
  1. SKYRIZI [Suspect]
     Active Substance: RISANKIZUMAB-RZAA
     Indication: Psoriasis
     Route: 058
     Dates: start: 20231212

REACTIONS (10)
  - Fall [Recovering/Resolving]
  - Spinal fracture [Unknown]
  - Cerebral haemorrhage [Unknown]
  - Suture insertion [Unknown]
  - Head injury [Recovering/Resolving]
  - Gait disturbance [Recovering/Resolving]
  - Concussion [Recovering/Resolving]
  - Retinal detachment [Unknown]
  - Muscular weakness [Recovering/Resolving]
  - Cervical vertebral fracture [Unknown]

NARRATIVE: CASE EVENT DATE: 20240101
